FAERS Safety Report 8451675-1 (Version None)
Quarter: 2012Q2

REPORT INFORMATION
  Report Type: 
  Country: None (occurrence: None)
  Receive Date: 20120620
  Receipt Date: 20120313
  Transmission Date: 20120825
  Serious: No
  Sender: FDA-Public Use
  Company Number: US-VERTEX PHARMACEUTICALS INC.-AE-2012-003574

PATIENT
  Sex: Male
  Weight: 70.37 kg

DRUGS (5)
  1. INCIVEK [Suspect]
     Indication: HEPATITIS C
     Route: 048
     Dates: start: 20120121
  2. RIBAVIRIN [Concomitant]
     Dates: start: 20120301
  3. PEGASYS [Concomitant]
     Indication: HEPATITIS C
     Route: 058
     Dates: start: 20111119
  4. PROCRIT [Concomitant]
     Indication: ANAEMIA
     Route: 058
     Dates: start: 20120301
  5. RIBAVIRIN [Concomitant]
     Indication: HEPATITIS C
     Route: 048
     Dates: start: 20111119

REACTIONS (4)
  - CHILLS [None]
  - PALPITATIONS [None]
  - RASH PAPULAR [None]
  - OEDEMA PERIPHERAL [None]
